FAERS Safety Report 23778504 (Version 1)
Quarter: 2024Q2

REPORT INFORMATION
  Report Type: Other
  Country: US (occurrence: None)
  Receive Date: 20240424
  Receipt Date: 20240424
  Transmission Date: 20240716
  Serious: Yes (Hospitalization)
  Sender: FDA-Public Use
  Company Number: US-ROCHE-3549818

PATIENT
  Age: 74 Year
  Sex: Female

DRUGS (9)
  1. XOLAIR [Suspect]
     Active Substance: OMALIZUMAB
     Indication: Idiopathic urticaria
     Dosage: ANTICIPATED DATE OF TREATMENT REPORTED ON 01/MAY/2024
     Route: 058
  2. XOLAIR [Suspect]
     Active Substance: OMALIZUMAB
  3. XOLAIR [Suspect]
     Active Substance: OMALIZUMAB
  4. DUREZOL [Concomitant]
     Active Substance: DIFLUPREDNATE
  5. RESTASIS [Concomitant]
     Active Substance: CYCLOSPORINE
  6. CLOBETASOL [Concomitant]
     Active Substance: CLOBETASOL
  7. EFUDEX [Concomitant]
     Active Substance: FLUOROURACIL
  8. LEVOTHYROXINE [Concomitant]
     Active Substance: LEVOTHYROXINE\LEVOTHYROXINE SODIUM
  9. PRAVASTATIN [Concomitant]
     Active Substance: PRAVASTATIN

REACTIONS (15)
  - Anaphylactic reaction [Unknown]
  - Arthralgia [Unknown]
  - Dizziness [Unknown]
  - Fatigue [Unknown]
  - Dermatitis [Unknown]
  - Hand dermatitis [Unknown]
  - Skin infection [Unknown]
  - Eye irritation [Unknown]
  - Abdominal discomfort [Unknown]
  - Oral herpes [Unknown]
  - Headache [Unknown]
  - Upper respiratory tract infection [Unknown]
  - Scar [Unknown]
  - Pain [Unknown]
  - Haemorrhage [Unknown]
